FAERS Safety Report 4870645-3 (Version None)
Quarter: 2005Q4

REPORT INFORMATION
  Report Type: 
  Country: None (occurrence: None)
  Receive Date: 20051228
  Receipt Date: 20051213
  Transmission Date: 20060501
  Serious: Yes (Other)
  Sender: FDA-Public Use
  Company Number: FACT0500728

PATIENT
  Age: 20 Year
  Sex: Female

DRUGS (1)
  1. FACTIVE [Suspect]
     Indication: RESPIRATORY TRACT INFECTION BACTERIAL
     Dosage: 320 MG, QD, ORAL
     Route: 048

REACTIONS (5)
  - ANAPHYLACTIC REACTION [None]
  - CHOKING [None]
  - COUGH [None]
  - DYSPNOEA [None]
  - RASH [None]
